FAERS Safety Report 7327024-9 (Version None)
Quarter: 2011Q1

REPORT INFORMATION
  Report Type: 
  Country: None (occurrence: None)
  Receive Date: 20110302
  Receipt Date: 20110223
  Transmission Date: 20110831
  Serious: Yes (Other)
  Sender: FDA-Public Use
  Company Number: CA-JNJFOC-20110208565

PATIENT
  Sex: Female
  Weight: 62.5 kg

DRUGS (7)
  1. PREVACID [Concomitant]
  2. CHOLESTYRAMINE [Concomitant]
  3. INDAPAMIDE [Concomitant]
  4. VALTREX [Concomitant]
  5. IMURAN [Concomitant]
  6. REMICADE [Suspect]
     Indication: CROHN'S DISEASE
     Dosage: EVERY 6-8 WEEKS
     Route: 042
  7. ATACAND [Concomitant]

REACTIONS (4)
  - BLOOD PRESSURE INCREASED [None]
  - SINUSITIS [None]
  - BRONCHITIS [None]
  - GASTROOESOPHAGEAL REFLUX DISEASE [None]
